FAERS Safety Report 7815576-1 (Version None)
Quarter: 2011Q4

REPORT INFORMATION
  Report Type: 
  Country: None (occurrence: None)
  Receive Date: 20111014
  Receipt Date: 20111011
  Transmission Date: 20120403
  Serious: Yes (Hospitalization, Other)
  Sender: FDA-Public Use
  Company Number: US-PFIZER INC-2011243116

PATIENT
  Sex: Female
  Weight: 83.9 kg

DRUGS (5)
  1. GEODON [Suspect]
     Indication: BIPOLAR DISORDER
     Dosage: 40 MG, 2X/DAY
     Route: 048
     Dates: start: 20101130
  2. GEODON [Suspect]
     Indication: POST-TRAUMATIC STRESS DISORDER
  3. GEODON [Suspect]
     Indication: BIPOLAR I DISORDER
  4. CARBAMAZEPINE [Concomitant]
     Dosage: 100 MG, 3X/DAY
  5. METOPROLOL [Concomitant]
     Dosage: 25 MG, 2X/DAY

REACTIONS (9)
  - DISTURBANCE IN ATTENTION [None]
  - ANXIETY [None]
  - HOMICIDAL IDEATION [None]
  - INSOMNIA [None]
  - POST-TRAUMATIC STRESS DISORDER [None]
  - DYSARTHRIA [None]
  - COORDINATION ABNORMAL [None]
  - SUICIDAL IDEATION [None]
  - BIPOLAR DISORDER [None]
